FAERS Safety Report 11717617 (Version 1)
Quarter: 2015Q4

REPORT INFORMATION
  Report Type: Spontaneous
  Country: US (occurrence: US)
  Receive Date: 20151110
  Receipt Date: 20151110
  Transmission Date: 20160304
  Serious: Yes (Other)
  Sender: FDA-Public Use
  Company Number: US-009507513-1511USA003431

PATIENT
  Age: 50 Year
  Sex: Male

DRUGS (19)
  1. PEGINTRON [Suspect]
     Active Substance: PEGINTERFERON ALFA-2B
     Indication: HEPATITIS C
     Dosage: UNK
  2. PEGINTERFERON ALFA-2A [Suspect]
     Active Substance: PEGINTERFERON ALFA-2A
     Indication: HEPATITIS C
     Dosage: UNK
     Dates: end: 200408
  3. ACETAMINOPHEN (+) HYDROCODONE BITARTRATE [Suspect]
     Active Substance: ACETAMINOPHEN\HYDROCODONE
     Indication: PAIN
  4. AMOXICILLIN. [Concomitant]
     Active Substance: AMOXICILLIN
  5. VICODIN [Concomitant]
     Active Substance: ACETAMINOPHEN\HYDROCODONE BITARTRATE
  6. DIAZEPAM. [Suspect]
     Active Substance: DIAZEPAM
     Indication: PAIN
  7. ACETAMINOPHEN AND CODEINE [Concomitant]
     Active Substance: ACETAMINOPHEN\CODEINE PHOSPHATE
  8. RIBASPHERE [Suspect]
     Active Substance: RIBAVIRIN
     Indication: HEPATITIS C
     Dosage: UNK
     Dates: end: 200408
  9. ETODOLAC. [Concomitant]
     Active Substance: ETODOLAC
  10. HERBS (UNSPECIFIED) [Concomitant]
     Active Substance: HERBALS
  11. REBETOL [Suspect]
     Active Substance: RIBAVIRIN
     Indication: HEPATITIS C
     Dosage: UNK
     Route: 048
     Dates: end: 200408
  12. OXYMETAZOLINE HYDROCHLORIDE. [Concomitant]
     Active Substance: OXYMETAZOLINE HYDROCHLORIDE
     Route: 045
  13. ASCORBIC ACID. [Concomitant]
     Active Substance: ASCORBIC ACID
  14. RANITIDINE [Concomitant]
     Active Substance: RANITIDINE\RANITIDINE HYDROCHLORIDE
  15. VITAMINS (UNSPECIFIED) [Concomitant]
     Active Substance: VITAMINS
  16. SILDENAFIL CITRATE. [Concomitant]
     Active Substance: SILDENAFIL CITRATE
  17. MILK THISTLE [Concomitant]
     Active Substance: MILK THISTLE
  18. ZOCOR [Concomitant]
     Active Substance: SIMVASTATIN
     Route: 048
  19. MINERALS (UNSPECIFIED) [Concomitant]

REACTIONS (27)
  - Thermal burn [Unknown]
  - Musculoskeletal pain [Unknown]
  - Insomnia [Unknown]
  - Drug dose omission [Unknown]
  - Cluster headache [Unknown]
  - Alanine aminotransferase increased [Unknown]
  - Pain in extremity [Unknown]
  - Vision blurred [Unknown]
  - Platelet count decreased [Unknown]
  - Heart rate decreased [Unknown]
  - Nausea [Unknown]
  - Asthenia [Unknown]
  - Skin lesion [Unknown]
  - Fatigue [Unknown]
  - Feeling abnormal [Unknown]
  - Decreased appetite [Unknown]
  - White blood cell count decreased [Unknown]
  - Impaired work ability [Unknown]
  - Monocyte count increased [Unknown]
  - Neck pain [Unknown]
  - Somnolence [Unknown]
  - Pain [Unknown]
  - Bursitis infective [Unknown]
  - Amnesia [Unknown]
  - Disturbance in attention [Unknown]
  - Sinusitis [Unknown]
  - Fatigue [Unknown]

NARRATIVE: CASE EVENT DATE: 20040317
